FAERS Safety Report 4537954-9 (Version None)
Quarter: 2004Q4

REPORT INFORMATION
  Report Type: 
  Country: None (occurrence: None)
  Receive Date: 20041221
  Receipt Date: 20041210
  Transmission Date: 20050328
  Serious: No
  Sender: FDA-Public Use
  Company Number: THYM-10383

PATIENT
  Age: 10 Year
  Sex: Female

DRUGS (19)
  1. THYMOGLOBULIN [Suspect]
     Indication: RENAL TRANSPLANT
     Dosage: 1.5 MG/KG
  2. RECOMBINANT HUMAN GROWTH FACTOR [Concomitant]
  3. ENALAPRIL [Concomitant]
  4. BICITRA [Concomitant]
  5. CALCIUM CARBONATE [Concomitant]
  6. LORATADINE [Concomitant]
  7. MULTI-VITAMINS [Concomitant]
  8. PARICALCITOL [Concomitant]
  9. EPOETIN ALPHA [Concomitant]
  10. ACETAMINOPHEN [Concomitant]
  11. DIPHENHYDRAMINE [Concomitant]
  12. MAGNESIUM SULFATE [Concomitant]
  13. GANCYCLOVIR [Concomitant]
  14. NARCOTICS [Concomitant]
  15. DAPSONE [Concomitant]
  16. METHYLPREDNISOLONE [Concomitant]
  17. AZATHIOPRINE [Concomitant]
  18. CEFUROXIME [Concomitant]
  19. RINGER'S [Concomitant]

REACTIONS (10)
  - EYELID OEDEMA [None]
  - HEADACHE [None]
  - HYPERVOLAEMIA [None]
  - INTRACRANIAL PRESSURE INCREASED [None]
  - PAPILLOEDEMA [None]
  - PHOTOPHOBIA [None]
  - PULMONARY CONGESTION [None]
  - PYREXIA [None]
  - VISION BLURRED [None]
  - WEIGHT INCREASED [None]
